FAERS Safety Report 8175116-7 (Version None)
Quarter: 2012Q1

REPORT INFORMATION
  Report Type: 
  Country: None (occurrence: None)
  Receive Date: 20120229
  Receipt Date: 20120223
  Transmission Date: 20120608
  Serious: Yes (Death)
  Sender: FDA-Public Use
  Company Number: PHHY2012DE015992

PATIENT
  Sex: Female
  Weight: 69 kg

DRUGS (9)
  1. VITAMIN D [Concomitant]
     Route: 048
  2. AMLODIPINE [Concomitant]
     Dates: start: 20110101
  3. CALCIUM [Concomitant]
     Dosage: 500 MG, DAILY
     Route: 048
  4. METOPROLOL SUCCINATE [Concomitant]
     Dates: start: 20110101
  5. ACETYLSALICYLIC ACID SRT [Concomitant]
     Dates: start: 20091001
  6. PANTOPRAZOLE [Concomitant]
     Dates: start: 20110101
  7. SUNITINIB MALATE [Concomitant]
     Dates: start: 20081201
  8. TORSEMIDE [Concomitant]
     Dates: start: 20091001
  9. ZOMETA [Suspect]
     Indication: BONE DISORDER
     Dosage: 4 MG, EVERY FOUR WEEKS
     Route: 042
     Dates: start: 20110220

REACTIONS (1)
  - DEATH [None]
